FAERS Safety Report 5077120-4 (Version None)
Quarter: 2006Q3

REPORT INFORMATION
  Report Type: 
  Country: None (occurrence: None)
  Receive Date: 20060810
  Receipt Date: 20051214
  Transmission Date: 20061208
  Serious: No
  Sender: FDA-Public Use
  Company Number: US-GLAXOSMITHKLINE-A0585890A

PATIENT
  Age: 65 Year
  Sex: Female

DRUGS (3)
  1. PAXIL [Suspect]
     Indication: MIGRAINE
     Dosage: 30MG PER DAY
     Route: 048
  2. TOPAMAX [Suspect]
     Indication: MIGRAINE
     Dosage: 200MG PER DAY
  3. INDERAL [Concomitant]

REACTIONS (2)
  - FLAT AFFECT [None]
  - THERAPEUTIC RESPONSE UNEXPECTED [None]
